FAERS Safety Report 7533146-X (Version None)
Quarter: 2011Q2

REPORT INFORMATION
  Report Type: 
  Country: None (occurrence: None)
  Receive Date: 20110608
  Receipt Date: 20030611
  Transmission Date: 20111010
  Serious: Yes (Hospitalization)
  Sender: FDA-Public Use
  Company Number: PHFR2003GB01868

PATIENT
  Sex: Male

DRUGS (3)
  1. VENLAFAXINE [Concomitant]
     Dosage: 187.5MG/DAY
  2. CLOZAPINE [Suspect]
     Indication: SCHIZOPHRENIA
     Dosage: 900MG/DAY
     Route: 048
     Dates: start: 19930909
  3. DEPAKOTE [Concomitant]
     Dosage: 250 MG, TID

REACTIONS (3)
  - FRACTURE [None]
  - TIBIA FRACTURE [None]
  - FALL [None]
